FAERS Safety Report 8912566 (Version 1)
Quarter: 2012Q4

REPORT INFORMATION
  Report Type: 
  Country: PT (occurrence: PT)
  Receive Date: 20121116
  Receipt Date: 20121116
  Transmission Date: 20130627
  Serious: Yes (Death, Other)
  Sender: FDA-Public Use
  Company Number: PT-MPIJNJ-2012-07991

PATIENT
  Age: 71 Year
  Sex: Female

DRUGS (7)
  1. VELCADE [Suspect]
     Indication: MULTIPLE MYELOMA
     Dosage: 1.3 mg/m2, UNK
     Route: 065
  2. VELCADE [Suspect]
     Dosage: 1 mg/m2, UNK
     Route: 065
  3. MELPHALAN [Concomitant]
     Indication: MULTIPLE MYELOMA
     Dosage: 9 mg/m2, UNK
  4. PREDNISOLONE [Concomitant]
     Indication: MULTIPLE MYELOMA
     Dosage: 100 mg, UNK
  5. THALIDOMIDE [Concomitant]
     Indication: MULTIPLE MYELOMA
  6. DEXAMETHASONE [Concomitant]
     Indication: MULTIPLE MYELOMA
  7. ACYCLOVIR                          /00587301/ [Concomitant]
     Indication: HERPES ZOSTER

REACTIONS (3)
  - Sepsis [Fatal]
  - Neuropathy peripheral [Unknown]
  - Bone marrow toxicity [Unknown]
